FAERS Safety Report 6052771-9 (Version None)
Quarter: 2009Q1

REPORT INFORMATION
  Report Type: 
  Country: None (occurrence: None)
  Receive Date: 20090127
  Receipt Date: 20090122
  Transmission Date: 20090719
  Serious: Yes (Hospitalization)
  Sender: FDA-Public Use
  Company Number: DE-BAYER-200816786GPV

PATIENT
  Age: 56 Year
  Sex: Male
  Weight: 87 kg

DRUGS (8)
  1. SORAFENIB [Suspect]
     Indication: NON-SMALL CELL LUNG CANCER
     Dosage: TOTAL DAILY DOSE: 800 MG
     Route: 048
     Dates: start: 20080408, end: 20080413
  2. CISPLATIN [Suspect]
     Indication: NON-SMALL CELL LUNG CANCER
     Dosage: TOTAL DAILY DOSE: 150 MG
     Route: 042
     Dates: start: 20080408, end: 20080408
  3. GEMCITABINE [Suspect]
     Indication: NON-SMALL CELL LUNG CANCER
     Dosage: TOTAL DAILY DOSE: 2.5 G
     Route: 042
     Dates: start: 20080408, end: 20080408
  4. BLOPRESS [Concomitant]
     Indication: HYPERTENSION
     Route: 065
     Dates: start: 20050101
  5. ASPIRIN [Concomitant]
     Indication: PROPHYLAXIS
     Route: 048
     Dates: start: 20050101
  6. METOCLOPRAMIDE HYDROCHLORIDE [Concomitant]
     Indication: NAUSEA
     Route: 065
     Dates: start: 20080409, end: 20080410
  7. SALVIATHYMOL [Concomitant]
     Indication: MUCOSAL INFLAMMATION
     Route: 065
     Dates: start: 20080514, end: 20080520
  8. BEPANTHEN [Concomitant]
     Indication: NASAL DRYNESS
     Route: 045
     Dates: start: 20080514, end: 20080520

REACTIONS (3)
  - CIRCULATORY COLLAPSE [None]
  - DEHYDRATION [None]
  - DIARRHOEA [None]
